FAERS Safety Report 4562858-5 (Version None)
Quarter: 2005Q1

REPORT INFORMATION
  Report Type: 
  Country: None (occurrence: None)
  Receive Date: 20050121
  Receipt Date: 20050105
  Transmission Date: 20050727
  Serious: Yes (Death)
  Sender: FDA-Public Use
  Company Number: GBT050101873

PATIENT
  Age: 23 Year
  Sex: Male
  Weight: 109 kg

DRUGS (2)
  1. HUMATROPE [Suspect]
     Indication: GROWTH HORMONE DEFICIENCY
     Dates: start: 20021004
  2. SUSTANON [Concomitant]

REACTIONS (2)
  - HYPERTRIGLYCERIDAEMIA [None]
  - PANCREATITIS [None]
